FAERS Safety Report 20280400 (Version 2)
Quarter: 2022Q1

REPORT INFORMATION
  Report Type: Report from Study
  Country: FR (occurrence: FR)
  Receive Date: 20220103
  Receipt Date: 20220107
  Transmission Date: 20220424
  Serious: Yes (Death)
  Sender: FDA-Public Use
  Company Number: FR-BRISTOL-MYERS SQUIBB COMPANY-BMS-2021-144288

PATIENT
  Age: 45 Year
  Sex: Male

DRUGS (6)
  1. NIVOLUMAB [Suspect]
     Active Substance: NIVOLUMAB
     Indication: Renal cell carcinoma
     Dosage: 280 MILLIGRAM
     Route: 065
     Dates: start: 20210607
  2. NIVOLUMAB [Suspect]
     Active Substance: NIVOLUMAB
     Dosage: 280 MILLIGRAM
     Route: 065
     Dates: start: 20210628
  3. NIVOLUMAB [Suspect]
     Active Substance: NIVOLUMAB
     Dosage: 295 MILLIGRAM
     Route: 065
     Dates: start: 20210719
  4. IPILIMUMAB [Suspect]
     Active Substance: IPILIMUMAB
     Indication: Product used for unknown indication
     Dosage: 95 MILLIGRAM
     Route: 065
     Dates: start: 20210607
  5. IPILIMUMAB [Suspect]
     Active Substance: IPILIMUMAB
     Dosage: 95 MILLIGRAM
     Route: 065
     Dates: start: 20210628
  6. IPILIMUMAB [Suspect]
     Active Substance: IPILIMUMAB
     Dosage: 99 MILLIGRAM
     Route: 065
     Dates: start: 20210719

REACTIONS (2)
  - General physical condition abnormal [Fatal]
  - Hypercalcaemia [Fatal]
